FAERS Safety Report 20512038 (Version 2)
Quarter: 2022Q1

REPORT INFORMATION
  Report Type: Spontaneous
  Country: JP (occurrence: JP)
  Receive Date: 20220224
  Receipt Date: 20220310
  Transmission Date: 20220423
  Serious: Yes (Death, Other)
  Sender: FDA-Public Use
  Company Number: JP-GSKJP-JP2022JPN031605AA

PATIENT
  Age: 89 Year
  Sex: Male

DRUGS (4)
  1. SOTROVIMAB [Suspect]
     Active Substance: SOTROVIMAB
     Indication: COVID-19
     Dosage: 500 MG, QD
     Dates: start: 20220130, end: 20220130
  2. CALONAL [Suspect]
     Active Substance: ACETAMINOPHEN
     Indication: Pyrexia
     Dosage: 400 MG, QD
     Dates: start: 20220130, end: 20220130
  3. CALONAL [Suspect]
     Active Substance: ACETAMINOPHEN
     Indication: COVID-19
  4. ISOTONIC SODIUM CHLORIDE SOLUTION [Concomitant]
     Active Substance: SODIUM CHLORIDE
     Dosage: UNK

REACTIONS (4)
  - Cardiac failure acute [Fatal]
  - Vomiting [Recovering/Resolving]
  - Nausea [Unknown]
  - Malaise [Unknown]

NARRATIVE: CASE EVENT DATE: 20220201
